FAERS Safety Report 8059080-7 (Version None)
Quarter: 2012Q1

REPORT INFORMATION
  Report Type: 
  Country: None (occurrence: None)
  Receive Date: 20120120
  Receipt Date: 20111010
  Transmission Date: 20120608
  Serious: No
  Sender: FDA-Public Use
  Company Number: US-BAUSCH-2011BL006881

PATIENT
  Age: 80 Year
  Sex: Female

DRUGS (2)
  1. ALAWAY [Suspect]
     Indication: EYE PRURITUS
     Route: 047
     Dates: start: 20111003, end: 20111003
  2. ALAWAY [Suspect]
     Indication: HYPERSENSITIVITY
     Route: 047
     Dates: start: 20111003, end: 20111003

REACTIONS (2)
  - VISION BLURRED [None]
  - EXPIRED DRUG ADMINISTERED [None]
